FAERS Safety Report 9735525 (Version 1)
Quarter: 2013Q4

REPORT INFORMATION
  Report Type: Spontaneous
  Country: US (occurrence: None)
  Receive Date: 20131204
  Receipt Date: 20131204
  Transmission Date: 20140711
  Serious: Yes (Death)
  Sender: FDA-Public Use
  Company Number: US-ALKEM-000330

PATIENT
  Age: 46 Year
  Sex: Female

DRUGS (4)
  1. GABAPENTIN [Suspect]
  2. CARISOPRODOL(CARISOPRODOL) [Suspect]
  3. ACETAMINOPHEN W/OXYCODONE [Suspect]
  4. BUTALBITAL W/ASPIRIN/CAFFEINE [Suspect]

REACTIONS (4)
  - Completed suicide [None]
  - Cardio-respiratory arrest [None]
  - Exposure via ingestion [None]
  - Overdose [None]
